FAERS Safety Report 6636560-X (Version None)
Quarter: 2010Q1

REPORT INFORMATION
  Report Type: 
  Country: None (occurrence: None)
  Receive Date: 20100226
  Receipt Date: 20091202
  Transmission Date: 20100710
  Serious: Yes (Other)
  Sender: FDA-Public Use
  Company Number: 217424USA

PATIENT
  Age: 18 Year
  Sex: Female
  Weight: 58.9676 kg

DRUGS (2)
  1. ADDERALL 10 [Suspect]
     Dosage: ORAL
     Route: 048
     Dates: start: 20090101
  2. OBETROL [Suspect]
     Dosage: ORAL
     Route: 048
     Dates: start: 20090101

REACTIONS (6)
  - AGGRESSION [None]
  - DRUG ABUSE [None]
  - DRUG DIVERSION [None]
  - DRUG SCREEN POSITIVE [None]
  - IMPULSIVE BEHAVIOUR [None]
  - INTENTIONAL OVERDOSE [None]
